FAERS Safety Report 12082924 (Version 2)
Quarter: 2016Q1

REPORT INFORMATION
  Report Type: Spontaneous
  Country: US (occurrence: US)
  Receive Date: 20160217
  Receipt Date: 20160311
  Transmission Date: 20160526
  Serious: No
  Sender: FDA-Public Use
  Company Number: US-PFIZER INC-2016033719

PATIENT
  Age: 79 Year
  Sex: Female
  Weight: 66 kg

DRUGS (6)
  1. CENTRUM SILVER [Concomitant]
     Active Substance: MINERALS\VITAMINS
     Dosage: 1X/DAY
     Dates: start: 2010
  2. VITAMIN D [Concomitant]
     Active Substance: CHOLECALCIFEROL
     Dosage: UNK
     Dates: start: 2010
  3. CITRACAL [Concomitant]
     Active Substance: CALCIUM CITRATE
     Dosage: UNK
     Dates: start: 2005
  4. LIPITOR [Suspect]
     Active Substance: ATORVASTATIN CALCIUM
     Indication: CEREBROVASCULAR ACCIDENT
     Dosage: 80 MG, 1X/DAY
     Route: 048
     Dates: start: 20151019
  5. TRIAMTERENE. [Suspect]
     Active Substance: TRIAMTERENE
     Indication: BLOOD PRESSURE ABNORMAL
     Dosage: UNK, 1X/DAY (0.05, 1 DAILY 37.5-25)
     Dates: start: 2005
  6. PLAVIX [Suspect]
     Active Substance: CLOPIDOGREL BISULFATE
     Indication: CEREBROVASCULAR ACCIDENT
     Dosage: 75 MG, 1X/DAY
     Route: 048
     Dates: start: 20151019

REACTIONS (1)
  - Alopecia [Not Recovered/Not Resolved]

NARRATIVE: CASE EVENT DATE: 20151019
